FAERS Safety Report 11385554 (Version 14)
Quarter: 2018Q2

REPORT INFORMATION
  Report Type: Report from Study
  Country: US (occurrence: US)
  Receive Date: 20150816
  Receipt Date: 20180601
  Transmission Date: 20180711
  Serious: No
  Sender: FDA-Public Use
  Company Number: PHHY2014US070611

PATIENT
  Age: 57 Year
  Sex: Male

DRUGS (29)
  1. ULTRAM [Concomitant]
     Active Substance: TRAMADOL HYDROCHLORIDE
     Indication: PRODUCT USED FOR UNKNOWN INDICATION
     Dosage: 50 MG, QID (AS NEEDED)
     Route: 048
  2. PROTONIX [Concomitant]
     Active Substance: PANTOPRAZOLE SODIUM
     Indication: PRODUCT USED FOR UNKNOWN INDICATION
     Dosage: 40 MG, QD
     Route: 048
     Dates: start: 20170719, end: 20170720
  3. GILENYA [Suspect]
     Active Substance: FINGOLIMOD HYDROCHLORIDE
     Indication: MULTIPLE SCLEROSIS
     Dosage: UNK, QD
     Route: 048
  4. DEPO-TESTOSTERONE [Concomitant]
     Active Substance: TESTOSTERONE CYPIONATE
     Indication: PRODUCT USED FOR UNKNOWN INDICATION
     Dosage: 200 MG, QW3
     Route: 030
  5. ALBUMIN HUMAN [Concomitant]
     Active Substance: ALBUMIN HUMAN
     Indication: PRODUCT USED FOR UNKNOWN INDICATION
     Dosage: 250 ML, UNK
     Route: 065
     Dates: start: 20170720, end: 20170720
  6. POTASSIUM CHLORIDE. [Concomitant]
     Active Substance: POTASSIUM CHLORIDE
     Dosage: 40 MEQ, UNK
     Route: 065
     Dates: start: 20170720, end: 20170720
  7. POTASSIUM CHLORIDE. [Concomitant]
     Active Substance: POTASSIUM CHLORIDE
     Dosage: 10 MEQ, UNK
     Route: 065
     Dates: start: 20170728
  8. VISTARIL [Concomitant]
     Active Substance: HYDROXYZINE PAMOATE
     Indication: PRODUCT USED FOR UNKNOWN INDICATION
     Dosage: 25 MG, TID, PRN
     Route: 065
     Dates: start: 20170717
  9. ALTEPLASE. [Concomitant]
     Active Substance: ALTEPLASE
     Indication: PULMONARY EMBOLISM
     Dosage: 10 MG, UNK
     Route: 042
     Dates: start: 20170717, end: 20170717
  10. CALCIUM GLUCONATE. [Concomitant]
     Active Substance: CALCIUM GLUCONATE
     Indication: PRODUCT USED FOR UNKNOWN INDICATION
     Dosage: 1 G, ONCE/SINGLE
     Route: 042
     Dates: start: 20170717, end: 20170719
  11. ACETAMINOPHEN W/HYDROCODONE [Concomitant]
     Active Substance: ACETAMINOPHEN\HYDROCODONE
     Indication: PRODUCT USED FOR UNKNOWN INDICATION
     Route: 065
  12. ATIVAN [Concomitant]
     Active Substance: LORAZEPAM
     Indication: MUSCLE SPASMS
     Dosage: 1 MG, QHS
     Route: 065
     Dates: start: 20140606
  13. PERCOCET [Concomitant]
     Active Substance: ACETAMINOPHEN\OXYCODONE HYDROCHLORIDE
     Indication: PRODUCT USED FOR UNKNOWN INDICATION
     Dosage: 1 DF, QHS (5 MG OXYCODONE/325 MG PARACETAMOL)
     Route: 048
  14. SENOKOT CON DOCUSATO [Concomitant]
     Indication: PRODUCT USED FOR UNKNOWN INDICATION
     Dosage: 2 QHS, PRN
     Route: 065
     Dates: start: 20170717
  15. SODIUM CHLORIDE. [Concomitant]
     Active Substance: SODIUM CHLORIDE
     Indication: DEHYDRATION
     Dosage: 100 ML, ONCE
     Route: 042
     Dates: start: 20170716, end: 20170717
  16. SODIUM BICARBONATE. [Concomitant]
     Active Substance: SODIUM BICARBONATE
     Indication: PRODUCT USED FOR UNKNOWN INDICATION
     Dosage: 100 ML, PER HOUR
     Route: 065
     Dates: start: 20170717, end: 20170717
  17. ZAFIRLUKAST. [Concomitant]
     Active Substance: ZAFIRLUKAST
     Indication: PRODUCT USED FOR UNKNOWN INDICATION
     Dosage: 20 MG, UNK
     Route: 065
  18. POTASSIUM CHLORIDE. [Concomitant]
     Active Substance: POTASSIUM CHLORIDE
     Indication: PRODUCT USED FOR UNKNOWN INDICATION
     Dosage: 20 MEQ, UNK
     Route: 042
     Dates: start: 20170718, end: 20170720
  19. SYNTHROID [Concomitant]
     Active Substance: LEVOTHYROXINE SODIUM
     Indication: PRODUCT USED FOR UNKNOWN INDICATION
     Dosage: 1 DF, QD (BEFORE BREAKFAST)
     Route: 048
  20. SUCRALFATE. [Concomitant]
     Active Substance: SUCRALFATE
     Indication: PRODUCT USED FOR UNKNOWN INDICATION
     Dosage: 1 G, UNK
     Route: 065
  21. COMPAZINE [Concomitant]
     Active Substance: PROCHLORPERAZINE MALEATE
     Indication: PRODUCT USED FOR UNKNOWN INDICATION
     Dosage: 10 MG, Q6 PRN
     Route: 065
     Dates: start: 20170717, end: 20170717
  22. PROTONIX [Concomitant]
     Active Substance: PANTOPRAZOLE SODIUM
     Dosage: 40 MG, QD
     Route: 042
     Dates: start: 20170720, end: 20170729
  23. LIDOCAINE. [Concomitant]
     Active Substance: LIDOCAINE
     Indication: PRODUCT USED FOR UNKNOWN INDICATION
     Route: 062
  24. ALTEPLASE. [Concomitant]
     Active Substance: ALTEPLASE
     Dosage: 90 MG, UNK
     Route: 065
     Dates: start: 20170717, end: 20170717
  25. MULTIVITAMINS [Concomitant]
     Active Substance: VITAMINS
     Indication: PRODUCT USED FOR UNKNOWN INDICATION
     Route: 065
  26. DILAUDID [Concomitant]
     Active Substance: HYDROMORPHONE HYDROCHLORIDE
     Indication: PRODUCT USED FOR UNKNOWN INDICATION
     Dosage: 0.5 MG, UNK
     Route: 065
     Dates: start: 20170718, end: 20170729
  27. VITAMIN D2 [Concomitant]
     Active Substance: ERGOCALCIFEROL
     Indication: PRODUCT USED FOR UNKNOWN INDICATION
     Dosage: 50000 U, UNK
     Route: 065
  28. ZESTORETIC [Concomitant]
     Active Substance: HYDROCHLOROTHIAZIDE\LISINOPRIL
     Indication: PRODUCT USED FOR UNKNOWN INDICATION
     Dosage: 1 DF, QD (20 MG LISINOPRIL/12.5 MG HCTZ)
     Route: 048
  29. CALCIUM CHLORIDE. [Concomitant]
     Active Substance: CALCIUM CHLORIDE
     Indication: PRODUCT USED FOR UNKNOWN INDICATION
     Dosage: 1 G/L, ONCE/SINGLE
     Route: 042
     Dates: start: 20170717, end: 20170717

REACTIONS (29)
  - Photophobia [Unknown]
  - Hypersensitivity [Unknown]
  - Hot flush [Recovered/Resolved]
  - Seborrhoeic keratosis [Unknown]
  - Lentigo [Unknown]
  - Muscle spasticity [Unknown]
  - Lacrimation increased [Unknown]
  - Hyperaesthesia [Unknown]
  - Haematocrit decreased [Unknown]
  - Fatigue [Unknown]
  - Skin graft scar [Unknown]
  - Lymphocyte count decreased [Unknown]
  - Muscle spasms [Recovered/Resolved]
  - Depression [Recovered/Resolved]
  - Depression [Recovered/Resolved]
  - Pain in extremity [Unknown]
  - Chills [Recovered/Resolved]
  - Alanine aminotransferase increased [Unknown]
  - Oedema peripheral [Unknown]
  - Night sweats [Recovered/Resolved]
  - Diarrhoea [Recovered/Resolved]
  - Melanocytic naevus [Unknown]
  - Acrochordon [Unknown]
  - Hepatic enzyme increased [Unknown]
  - Abnormal sensation in eye [Unknown]
  - Peripheral swelling [Unknown]
  - Haemangioma [Unknown]
  - Actinic keratosis [Unknown]
  - Muscular weakness [Unknown]

NARRATIVE: CASE EVENT DATE: 20140304
